FAERS Safety Report 23437635 (Version 1)
Quarter: 2024Q1

REPORT INFORMATION
  Report Type: Report from Study
  Country: CO (occurrence: CO)
  Receive Date: 20240124
  Receipt Date: 20240124
  Transmission Date: 20240409
  Serious: Yes (Death, Hospitalization, Other)
  Sender: FDA-Public Use
  Company Number: CO-UCBSA-2024003537

PATIENT
  Age: 9 Year
  Sex: Female
  Weight: 70 kg

DRUGS (5)
  1. LACOSAMIDE [Suspect]
     Active Substance: LACOSAMIDE
     Indication: Epilepsy
     Dosage: 200 MILLIGRAM, 2X/DAY (BID)
     Route: 048
     Dates: start: 20220826, end: 20240103
  2. VALPROIC ACID [Concomitant]
     Active Substance: VALPROIC ACID
     Indication: Product used for unknown indication
     Dosage: 500 MILLIGRAM, 2X/DAY (BID)
     Route: 048
  3. BRIVARACETAM [Concomitant]
     Active Substance: BRIVARACETAM
     Indication: Product used for unknown indication
     Dosage: 10 MILLIGRAM, 2X/DAY (BID)
     Route: 048
  4. CLOBAZAM [Concomitant]
     Active Substance: CLOBAZAM
     Indication: Product used for unknown indication
     Dosage: 20 MILLIGRAM, 2X/DAY (BID)
     Route: 048
  5. CLONAZEPAM [Concomitant]
     Active Substance: CLONAZEPAM
     Indication: Epilepsy
     Dosage: 8 DROP

REACTIONS (5)
  - Cardio-respiratory arrest [Fatal]
  - Pneumonia [Unknown]
  - Endotracheal intubation [Unknown]
  - Respiratory distress [Unknown]
  - Seizure [Unknown]

NARRATIVE: CASE EVENT DATE: 20231231
